FAERS Safety Report 24307302 (Version 1)
Quarter: 2024Q3

REPORT INFORMATION
  Report Type: Report from Study
  Country: US (occurrence: None)
  Receive Date: 20240911
  Receipt Date: 20240911
  Transmission Date: 20241017
  Serious: Yes (Other)
  Sender: ASTRAZENECA
  Company Number: 2023A150826

PATIENT
  Sex: Female

DRUGS (1)
  1. TEZSPIRE [Suspect]
     Active Substance: TEZEPELUMAB-EKKO

REACTIONS (6)
  - Depression [Unknown]
  - Rash [Unknown]
  - Blister [Unknown]
  - Pruritus [Unknown]
  - Skin discolouration [Unknown]
  - Rash papular [Unknown]
